FAERS Safety Report 11676249 (Version 1)
Quarter: 2015Q4

REPORT INFORMATION
  Report Type: Spontaneous
  Country: DE (occurrence: DE)
  Receive Date: 20151028
  Receipt Date: 20151028
  Transmission Date: 20160304
  Serious: Yes (Hospitalization)
  Sender: FDA-Public Use
  Company Number: DE-BAXTER-2015BAX056830

PATIENT
  Age: 27 Year
  Sex: Female
  Weight: 91 kg

DRUGS (6)
  1. HYDROCORTISON [Concomitant]
     Active Substance: HYDROCORTISONE
     Indication: SUPPLEMENTATION THERAPY
     Route: 065
  2. HYDROCORTISON [Concomitant]
     Active Substance: HYDROCORTISONE
     Dosage: REDUCED DURING THERAPY COURSE UNTIL MAINTENANCE DOSE
     Route: 065
  3. CEFUROXIM [Suspect]
     Active Substance: CEFUROXIME
     Indication: PROPHYLAXIS
     Route: 042
     Dates: start: 20150708
  4. TISSEEL [Suspect]
     Active Substance: FIBRINOGEN HUMAN\THROMBIN HUMAN
     Indication: TISSUE SEALING
     Route: 065
     Dates: start: 20150708
  5. PREDNISOLON [Concomitant]
     Active Substance: PREDNISOLONE
     Indication: OPTIC NEURITIS
     Dosage: HIGH DOSE THERAPY FOR 3 DAYS
     Route: 065
  6. L-THYROXIN [Concomitant]
     Active Substance: LEVOTHYROXINE SODIUM
     Indication: SUPPLEMENTATION THERAPY
     Route: 065

REACTIONS (2)
  - Polyuria [Recovering/Resolving]
  - Cerebrospinal fluid leakage [Recovered/Resolved]

NARRATIVE: CASE EVENT DATE: 20150710
